FAERS Safety Report 23920444 (Version 1)
Quarter: 2024Q2

REPORT INFORMATION
  Report Type: Spontaneous
  Country: US (occurrence: US)
  Receive Date: 20240530
  Receipt Date: 20240530
  Transmission Date: 20240716
  Serious: Yes (Other)
  Sender: FDA-Public Use
  Company Number: US-Blueprint Medicines Corporation-3734

PATIENT
  Age: 9 Year
  Sex: Female

DRUGS (3)
  1. AYVAKIT [Suspect]
     Active Substance: AVAPRITINIB
     Indication: Malignant connective tissue neoplasm
     Dosage: ONE 100 MG AND ONE 50 MG FOR TOTAL OF 150 MG QD
     Route: 048
     Dates: start: 20240422
  2. AYVAKIT [Suspect]
     Active Substance: AVAPRITINIB
     Dosage: ONE 100 MG AND ONE 50 MG FOR TOTAL OF 150 MG QD
     Route: 048
     Dates: start: 20240422
  3. AYVAKIT [Suspect]
     Active Substance: AVAPRITINIB

REACTIONS (8)
  - Faecaloma [Not Recovered/Not Resolved]
  - Hepatic enzyme increased [Not Recovered/Not Resolved]
  - Blood bilirubin increased [Not Recovered/Not Resolved]
  - Fatigue [Not Recovered/Not Resolved]
  - Depression [Not Recovered/Not Resolved]
  - Affective disorder [Not Recovered/Not Resolved]
  - Constipation [Not Recovered/Not Resolved]
  - Off label use [Unknown]

NARRATIVE: CASE EVENT DATE: 20240422
